FAERS Safety Report 11176174 (Version 2)
Quarter: 2015Q3

REPORT INFORMATION
  Report Type: Spontaneous
  Country: US (occurrence: US)
  Receive Date: 20150609
  Receipt Date: 20150727
  Transmission Date: 20151125
  Serious: No
  Sender: FDA-Public Use
  Company Number: US-009507513-1505USA014289

PATIENT
  Age: 46 Year
  Sex: Female
  Weight: 97.96 kg

DRUGS (6)
  1. CYANOCOBALAMIN. [Concomitant]
     Active Substance: CYANOCOBALAMIN
  2. NAPROXEN. [Concomitant]
     Active Substance: NAPROXEN
  3. TRAMADOL HYDROCHLORIDE. [Concomitant]
     Active Substance: TRAMADOL HYDROCHLORIDE
  4. LORTAB [Concomitant]
     Active Substance: ACETAMINOPHEN\HYDROCODONE BITARTRATE
  5. NEXPLANON [Suspect]
     Active Substance: ETONOGESTREL
     Dosage: UNK
     Dates: start: 20150609
  6. NEXPLANON [Suspect]
     Active Substance: ETONOGESTREL
     Indication: CONTRACEPTION
     Dosage: 1 ROD PER 3 YEARS
     Route: 030
     Dates: start: 20150519, end: 20150523

REACTIONS (6)
  - Incorrect route of drug administration [Unknown]
  - Device expulsion [Recovered/Resolved]
  - Device deployment issue [Recovered/Resolved]
  - Needle issue [Recovered/Resolved]
  - Device difficult to use [Recovered/Resolved]
  - Implant site erythema [Unknown]

NARRATIVE: CASE EVENT DATE: 201505
